FAERS Safety Report 18157556 (Version 3)
Quarter: 2020Q3

REPORT INFORMATION
  Report Type: Spontaneous
  Country: BE (occurrence: BE)
  Receive Date: 20200817
  Receipt Date: 20200827
  Transmission Date: 20201103
  Serious: Yes (Hospitalization, Other)
  Sender: FDA-Public Use
  Company Number: BE-GILEAD-2020-0490336

PATIENT
  Age: 45 Year
  Sex: Female
  Weight: 85 kg

DRUGS (8)
  1. D?CURE [Concomitant]
     Active Substance: CHOLECALCIFEROL
     Dosage: 250000 IU, Q1WK
  2. CALCIUM CARBONATE. [Concomitant]
     Active Substance: CALCIUM CARBONATE
     Dosage: 1 DOSAGE FORM, QD
  3. PRIMPERAN SIROP [Concomitant]
     Indication: NAUSEA
     Dosage: UNK
  4. BEFACT FORTE [Concomitant]
     Indication: RADICULOPATHY
     Dosage: 2 DOSAGE FORM, QD
  5. EUSAPRIM FORTE [Concomitant]
     Active Substance: SULFAMETHOXAZOLE\TRIMETHOPRIM
     Indication: INFECTION PROPHYLAXIS
     Dosage: 1 DOSAGE FORM, UNK
  6. BIKTARVY [Suspect]
     Active Substance: BICTEGRAVIR SODIUM\EMTRICITABINE\TENOFOVIR ALAFENAMIDE FUMARATE
     Dosage: 1 DOSAGE FORM
     Route: 065
  7. BIKTARVY [Suspect]
     Active Substance: BICTEGRAVIR SODIUM\EMTRICITABINE\TENOFOVIR ALAFENAMIDE FUMARATE
     Indication: HIV INFECTION
     Dosage: 10 DOSAGE FORM, ONCE
     Route: 065
  8. INDOCOLLYRE [Concomitant]
     Active Substance: INDOMETHACIN
     Dosage: 1 GTT DROPS, BID

REACTIONS (3)
  - Intentional overdose [Recovered/Resolved]
  - Major depression [Not Recovered/Not Resolved]
  - Suicide attempt [Recovered/Resolved]

NARRATIVE: CASE EVENT DATE: 2020
